FAERS Safety Report 8870952 (Version 1)
Quarter: 2012Q4

REPORT INFORMATION
  Report Type: Spontaneous
  Country: US (occurrence: None)
  Receive Date: 20121026
  Receipt Date: 20121026
  Transmission Date: 20130627
  Serious: Yes (Other)
  Sender: FDA-Public Use
  Company Number: None

PATIENT
  Age: 58 Year
  Sex: Male
  Weight: 74.84 kg

DRUGS (1)
  1. LEVAQUIN [Suspect]
     Indication: PNEUMONIA

REACTIONS (11)
  - Tremor [None]
  - Muscle spasms [None]
  - Dyskinesia [None]
  - Hallucination [None]
  - Insomnia [None]
  - Abnormal behaviour [None]
  - Muscle tightness [None]
  - Impaired driving ability [None]
  - Abnormal dreams [None]
  - Fear [None]
  - Palpitations [None]
